FAERS Safety Report 4770819-6 (Version None)
Quarter: 2005Q3

REPORT INFORMATION
  Report Type: 
  Country: None (occurrence: None)
  Receive Date: 20050915
  Receipt Date: 20031022
  Transmission Date: 20060218
  Serious: Yes (Death, Hospitalization)
  Sender: FDA-Public Use
  Company Number: US-GLAXOSMITHKLINE-A0432255A

PATIENT
  Sex: Female

DRUGS (1)
  1. LAMICTAL [Suspect]
     Indication: HERPES VIRUS INFECTION
     Route: 048

REACTIONS (10)
  - BONE MARROW DEPRESSION [None]
  - CARDIAC ARREST [None]
  - CARDIAC FAILURE [None]
  - CARDIOPULMONARY FAILURE [None]
  - HEPATIC FAILURE [None]
  - HYPERSENSITIVITY [None]
  - MULTI-ORGAN FAILURE [None]
  - RASH [None]
  - RENAL FAILURE [None]
  - STEVENS-JOHNSON SYNDROME [None]
